FAERS Safety Report 10953963 (Version 1)
Quarter: 2015Q1

REPORT INFORMATION
  Report Type: Spontaneous
  Country: US (occurrence: None)
  Receive Date: 20150226
  Receipt Date: 20150226
  Transmission Date: 20150721
  Serious: No
  Sender: FDA-Public Use
  Company Number: TAP2004Q01190

PATIENT
  Sex: Male

DRUGS (1)
  1. PREVACID [Suspect]
     Active Substance: LANSOPRAZOLE
     Indication: DYSPEPSIA
     Dosage: AS REQUIRED
     Route: 048
     Dates: end: 20040910

REACTIONS (7)
  - Hypersensitivity [None]
  - Urticaria [None]
  - Paraesthesia [None]
  - Mental impairment [None]
  - Fatigue [None]
  - Sensation of foreign body [None]
  - Gait disturbance [None]

NARRATIVE: CASE EVENT DATE: 20040910
